FAERS Safety Report 4847787-1 (Version None)
Quarter: 2005Q4

REPORT INFORMATION
  Report Type: 
  Country: None (occurrence: None)
  Receive Date: 20051207
  Receipt Date: 20051005
  Transmission Date: 20060501
  Serious: Yes (Hospitalization, Disabling)
  Sender: FDA-Public Use
  Company Number: US-MERCK-0510USA04760

PATIENT
  Age: 53 Year
  Sex: Male
  Weight: 132 kg

DRUGS (2)
  1. VIOXX [Suspect]
     Indication: INFLAMMATION
     Route: 048
     Dates: start: 20020601, end: 20030701
  2. VIOXX [Suspect]
     Indication: PAIN
     Route: 048
     Dates: start: 20020601, end: 20030701

REACTIONS (3)
  - BACK INJURY [None]
  - CARDIAC DISORDER [None]
  - MYOCARDIAL INFARCTION [None]
